FAERS Safety Report 4828590-5 (Version None)
Quarter: 2005Q4

REPORT INFORMATION
  Report Type: 
  Country: None (occurrence: None)
  Receive Date: 20051115
  Receipt Date: 20051108
  Transmission Date: 20060501
  Serious: Yes (Death)
  Sender: FDA-Public Use
  Company Number: US-JNJFOC-20051102271

PATIENT
  Sex: Male

DRUGS (1)
  1. DURAGESIC-100 [Suspect]
     Indication: DRUG USE FOR UNKNOWN INDICATION
     Route: 062

REACTIONS (6)
  - CARDIAC ARREST [None]
  - COMA [None]
  - FEELING ABNORMAL [None]
  - LEGAL PROBLEM [None]
  - LOSS OF CONSCIOUSNESS [None]
  - SOMNOLENCE [None]
